FAERS Safety Report 12340630 (Version 1)
Quarter: 2016Q2

REPORT INFORMATION
  Report Type: Spontaneous
  Country: US (occurrence: US)
  Receive Date: 20160506
  Receipt Date: 20160506
  Transmission Date: 20160815
  Serious: Yes (Hospitalization, Other)
  Sender: FDA-Public Use
  Company Number: US-SCIEGEN PHARMACEUTICALS INC-2016SCILIT00108

PATIENT

DRUGS (4)
  1. RISPERIDONE. [Suspect]
     Active Substance: RISPERIDONE
     Indication: PRODUCT USED FOR UNKNOWN INDICATION
     Dosage: UNK
     Route: 065
  2. LAMOTRIGINE. [Suspect]
     Active Substance: LAMOTRIGINE
     Indication: PRODUCT USED FOR UNKNOWN INDICATION
     Dosage: 250 MG, UNK
     Route: 065
  3. BUPROPION HYDROCHLORIDE. [Suspect]
     Active Substance: BUPROPION HYDROCHLORIDE
     Indication: PRODUCT USED FOR UNKNOWN INDICATION
     Dosage: 300 MG, UNK
     Route: 065
  4. ZIPRASIDONE. [Suspect]
     Active Substance: ZIPRASIDONE
     Indication: PRODUCT USED FOR UNKNOWN INDICATION
     Dosage: 80 MG, UNK
     Route: 065

REACTIONS (15)
  - Anxiety [Unknown]
  - Decreased interest [Unknown]
  - Obsessive thoughts [Recovering/Resolving]
  - Suicidal ideation [Unknown]
  - Compulsions [Recovering/Resolving]
  - Drug ineffective [Unknown]
  - Intrusive thoughts [Not Recovered/Not Resolved]
  - Depression [Recovering/Resolving]
  - Emotional distress [Unknown]
  - Irritability [Unknown]
  - Attention-seeking behaviour [Recovered/Resolved]
  - Cognitive disorder [Unknown]
  - Insomnia [Recovered/Resolved]
  - Anhedonia [Unknown]
  - Agitation [Unknown]
